FAERS Safety Report 8098357-6 (Version None)
Quarter: 2012Q1

REPORT INFORMATION
  Report Type: 
  Country: None (occurrence: None)
  Receive Date: 20120131
  Receipt Date: 20120123
  Transmission Date: 20120608
  Serious: Yes (Hospitalization)
  Sender: FDA-Public Use
  Company Number: US-US-EMD SERONO, INC.-7108953

PATIENT
  Sex: Male

DRUGS (3)
  1. REBIF [Suspect]
     Indication: PRODUCT USED FOR UNKNOWN INDICATION
     Route: 058
     Dates: start: 20110303, end: 20120111
  2. ACETAMINOPHEN [Concomitant]
  3. STEROIDS [Concomitant]

REACTIONS (6)
  - ABNORMAL BEHAVIOUR [None]
  - MUSCULOSKELETAL STIFFNESS [None]
  - VOMITING [None]
  - ABASIA [None]
  - BODY TEMPERATURE INCREASED [None]
  - TREMOR [None]
